FAERS Safety Report 8199975-7 (Version None)
Quarter: 2012Q1

REPORT INFORMATION
  Report Type: 
  Country: None (occurrence: None)
  Receive Date: 20120312
  Receipt Date: 20120306
  Transmission Date: 20120608
  Serious: No
  Sender: FDA-Public Use
  Company Number: US-PFIZER INC-2012043166

PATIENT
  Sex: Male

DRUGS (8)
  1. TERAZOSIN [Concomitant]
     Dosage: 2 MG, UNK
  2. ADVAIR DISKUS 100/50 [Concomitant]
     Dosage: 100/5
  3. PROVENTIL-HFA [Concomitant]
     Dosage: UNK
  4. CARDIZEM [Concomitant]
     Dosage: UNK
  5. TORISEL [Suspect]
     Indication: METASTATIC RENAL CELL CARCINOMA
     Dosage: 20 MG, WEEKLY X 8 WEEKS
     Dates: start: 20080228, end: 20080416
  6. SINGULAIR [Concomitant]
     Dosage: 10 MG, UNK
  7. SPIRIVA [Concomitant]
     Dosage: UNK
  8. PROSCAR [Concomitant]
     Dosage: 5 MG, UNK

REACTIONS (5)
  - PAIN [None]
  - ERYTHEMA [None]
  - PRURITUS GENERALISED [None]
  - RASH [None]
  - DIARRHOEA [None]
